FAERS Safety Report 6156456-X (Version None)
Quarter: 2009Q2

REPORT INFORMATION
  Report Type: 
  Country: None (occurrence: None)
  Receive Date: 20090413
  Receipt Date: 20090401
  Transmission Date: 20091009
  Serious: Yes (Hospitalization, Other)
  Sender: FDA-Public Use
  Company Number: 236035J08USA

PATIENT
  Age: 48 Year
  Sex: Female
  Weight: 78 kg

DRUGS (6)
  1. REBIF [Suspect]
     Indication: MULTIPLE SCLEROSIS
     Dosage: 44 MCG, 3 IN 1 WEEKS, SUBCUTANEOUS
     Route: 058
     Dates: start: 20070907
  2. ATACAND [Concomitant]
  3. QUINAPRIL HCL [Concomitant]
  4. WELLBUTRIN [Concomitant]
  5. TEGRETOL [Concomitant]
  6. ASPIRIN [Concomitant]

REACTIONS (2)
  - DEPRESSION [None]
  - DIVERTICULITIS [None]
